FAERS Safety Report 5781930-5 (Version None)
Quarter: 2008Q2

REPORT INFORMATION
  Report Type: 
  Country: None (occurrence: None)
  Receive Date: 20080623
  Receipt Date: 20080611
  Transmission Date: 20081010
  Serious: Yes (Death, Hospitalization)
  Sender: FDA-Public Use
  Company Number: B0525058A

PATIENT
  Age: 88 Year
  Sex: Female

DRUGS (6)
  1. ARIXTRA [Suspect]
     Indication: DEEP VEIN THROMBOSIS
     Dosage: 5MG PER DAY
     Route: 058
     Dates: start: 20080314, end: 20080321
  2. ASPIRIN [Concomitant]
     Dosage: 160MG PER DAY
     Route: 048
     Dates: end: 20080321
  3. GINKOR FORT [Concomitant]
     Route: 065
  4. LORAZEPAM [Concomitant]
     Route: 065
  5. METFORMIN HCL [Concomitant]
     Route: 065
  6. TANAKAN [Concomitant]
     Route: 065

REACTIONS (10)
  - CEREBRAL HAEMORRHAGE [None]
  - CHILLS [None]
  - COGNITIVE DISORDER [None]
  - CONFUSIONAL STATE [None]
  - FALL [None]
  - GENERAL PHYSICAL HEALTH DETERIORATION [None]
  - HYPERTENSION [None]
  - INTRAVENTRICULAR HAEMORRHAGE [None]
  - PAIN [None]
  - TREMOR [None]
